APPROVED DRUG PRODUCT: NICARDIPINE HYDROCHLORIDE
Active Ingredient: NICARDIPINE HYDROCHLORIDE
Strength: 30MG
Dosage Form/Route: CAPSULE;ORAL
Application: A074540 | Product #002
Applicant: ANI PHARMACEUTICALS INC
Approved: Oct 28, 1996 | RLD: No | RS: No | Type: DISCN